FAERS Safety Report 18965426 (Version 2)
Quarter: 2021Q1

REPORT INFORMATION
  Report Type: Spontaneous
  Country: GB (occurrence: GB)
  Receive Date: 20210304
  Receipt Date: 20210326
  Transmission Date: 20210420
  Serious: Yes (Other)
  Sender: FDA-Public Use
  Company Number: GB-ROCHE-2778931

PATIENT
  Sex: Female

DRUGS (1)
  1. HERCEPTIN [Suspect]
     Active Substance: TRASTUZUMAB
     Indication: PRODUCT USED FOR UNKNOWN INDICATION
     Route: 058
     Dates: start: 202008

REACTIONS (8)
  - Urinary tract infection [Unknown]
  - Anal incontinence [Unknown]
  - Abdominal neoplasm [Unknown]
  - Wrist fracture [Unknown]
  - Tumour pain [Unknown]
  - Decubitus ulcer [Unknown]
  - Hand fracture [Unknown]
  - Skin disorder [Unknown]
